FAERS Safety Report 9202782 (Version 2)
Quarter: 2013Q2

REPORT INFORMATION
  Report Type: Spontaneous
  Country: JP (occurrence: JP)
  Receive Date: 20130401
  Receipt Date: 20130417
  Transmission Date: 20140414
  Serious: Yes (Hospitalization)
  Sender: FDA-Public Use
  Company Number: JP-BAXTER-2013BAX012150

PATIENT
  Age: 15 Year
  Sex: Male

DRUGS (10)
  1. CYCLOPHOSPHAMIDE FOR INJECTION, USP [Suspect]
     Indication: B-CELL LYMPHOMA
     Route: 041
     Dates: start: 20070323, end: 20070325
  2. CYCLOPHOSPHAMIDE FOR INJECTION, USP [Suspect]
     Route: 041
     Dates: start: 20070328, end: 20070330
  3. PREDONINE [Suspect]
     Indication: B-CELL LYMPHOMA
     Route: 048
  4. PREDONINE [Suspect]
     Route: 048
     Dates: end: 20070326
  5. VINCRISTINE [Suspect]
     Indication: B-CELL LYMPHOMA
     Route: 042
     Dates: start: 20070322, end: 20070328
  6. DECADRON [Suspect]
     Indication: B-CELL LYMPHOMA
     Route: 048
     Dates: start: 20070327, end: 20070331
  7. METHOTREXATE [Suspect]
     Indication: B-CELL LYMPHOMA
     Route: 037
     Dates: start: 20070320, end: 20070320
  8. METHOTREXATE [Suspect]
     Route: 041
     Dates: start: 20070327, end: 20070327
  9. PIRARUBICIN [Suspect]
     Indication: B-CELL LYMPHOMA
     Route: 041
     Dates: start: 20070329, end: 20070329
  10. CLEITON [Suspect]
     Indication: B-CELL LYMPHOMA
     Route: 037
     Dates: start: 20070320, end: 20070320

REACTIONS (1)
  - Intestinal perforation [Recovered/Resolved]
